FAERS Safety Report 22348783 (Version 3)
Quarter: 2023Q4

REPORT INFORMATION
  Report Type: Spontaneous
  Country: AU (occurrence: AU)
  Receive Date: 20230522
  Receipt Date: 20231130
  Transmission Date: 20240110
  Serious: Yes (Hospitalization, Other)
  Sender: FDA-Public Use
  Company Number: AU-MYLANLABS-2023M1050194

PATIENT
  Sex: Female

DRUGS (11)
  1. CLOZARIL [Interacting]
     Active Substance: CLOZAPINE
     Indication: Schizophrenia
     Dosage: 300 MILLIGRAM, QD (AT NIGHT)
     Route: 048
     Dates: start: 20230223, end: 20230507
  2. ALCOHOL [Interacting]
     Active Substance: ALCOHOL
     Indication: Product used for unknown indication
     Dosage: UNK
     Route: 065
  3. PALIPERIDONE [Concomitant]
     Active Substance: PALIPERIDONE
     Dosage: UNK
     Route: 065
  4. ACAMPROSATE [Concomitant]
     Active Substance: ACAMPROSATE
     Dosage: 2 DOSAGE FORM, TID
     Route: 065
  5. ESCITALOPRAM [Concomitant]
     Active Substance: ESCITALOPRAM OXALATE
     Dosage: 20 MILLIGRAM, QD (MORNING)
     Route: 065
  6. LORAZEPAM [Concomitant]
     Active Substance: LORAZEPAM
     Dosage: 0.5 DOSAGE FORM, TID (HALF IN THE MORNING HALF AT LUNCH AND HALF AT BEDTIME)
     Route: 065
  7. PROPRANOLOL [Concomitant]
     Active Substance: PROPRANOLOL HYDROCHLORIDE
     Dosage: 2 DOSAGE FORM, BID (2 MORNING, 2 LUNCH)
     Route: 065
  8. THIAMINE [Concomitant]
     Active Substance: THIAMINE
     Dosage: 1 DOSAGE FORM, QD (IN MORNING)
     Route: 065
  9. BENZOYL PEROXIDE [Concomitant]
     Active Substance: BENZOYL PEROXIDE
     Indication: Acne
     Dosage: UNK
     Route: 065
  10. ALBUTEROL [Concomitant]
     Active Substance: ALBUTEROL
     Dosage: UNK(2-4 PUFFS AS REQUIRED)
     Route: 065
  11. NICOTINE [Concomitant]
     Active Substance: NICOTINE
     Dosage: 1 DOSAGE FORM, QD
     Route: 065

REACTIONS (4)
  - Catatonia [Unknown]
  - Rebound psychosis [Unknown]
  - Overdose [Unknown]
  - Labelled drug-food interaction medication error [Unknown]
